FAERS Safety Report 16982407 (Version 1)
Quarter: 2019Q4

REPORT INFORMATION
  Report Type: Report from Study
  Country: BR (occurrence: BR)
  Receive Date: 20191101
  Receipt Date: 20191101
  Transmission Date: 20200122
  Serious: Yes (Disabling)
  Sender: FDA-Public Use
  Company Number: NVSC2019BR019388

PATIENT
  Age: 63 Year
  Sex: Female

DRUGS (6)
  1. DESVENLAFAXINE. [Concomitant]
     Active Substance: DESVENLAFAXINE
     Indication: PRODUCT USED FOR UNKNOWN INDICATION
     Dosage: UNK
     Route: 065
  2. ANASTROZOLE. [Suspect]
     Active Substance: ANASTROZOLE
     Indication: NEOPLASM MALIGNANT
     Dosage: UNK
     Route: 065
  3. TAMOXIFEN CITRATE. [Suspect]
     Active Substance: TAMOXIFEN CITRATE
     Indication: PRODUCT USED FOR UNKNOWN INDICATION
     Dosage: UNK
     Route: 065
  4. CONCARDIO [Concomitant]
     Active Substance: BISOPROLOL FUMARATE
     Indication: PRODUCT USED FOR UNKNOWN INDICATION
     Dosage: UNK
     Route: 065
  5. PREGABALIN. [Concomitant]
     Active Substance: PREGABALIN
     Indication: PRODUCT USED FOR UNKNOWN INDICATION
     Dosage: UNK
     Route: 065
  6. ENTRESTO [Suspect]
     Active Substance: SACUBITRIL\VALSARTAN
     Indication: PRODUCT USED FOR UNKNOWN INDICATION
     Dosage: 200 MG (SACUBITRIL 97MG AND VALSARTAN 103MG)
     Route: 065

REACTIONS (12)
  - Fatigue [Recovering/Resolving]
  - Visual impairment [Unknown]
  - Back pain [Unknown]
  - Mental fatigue [Unknown]
  - Insomnia [Unknown]
  - Arthritis [Unknown]
  - Memory impairment [Unknown]
  - Peripheral swelling [Unknown]
  - Fibromyalgia [Unknown]
  - Endometrial hyperplasia [Unknown]
  - Calcium deficiency [Unknown]
  - Osteoporosis [Unknown]

NARRATIVE: CASE EVENT DATE: 20191024
